FAERS Safety Report 8710592 (Version 2)
Quarter: 2012Q4

REPORT INFORMATION
  Report Type: 
  Country: SI (occurrence: SI)
  Receive Date: 20120807
  Receipt Date: 20121113
  Transmission Date: 20130627
  Serious: Yes (Hospitalization)
  Sender: FDA-Public Use
  Company Number: SI-ELI_LILLY_AND_COMPANY-SI201207008308

PATIENT
  Age: 36 Year
  Sex: Male

DRUGS (5)
  1. ZYPADHERA [Suspect]
     Indication: SCHIZOPHRENIA
     Dosage: 210 mg, 2/M
     Dates: start: 20120712, end: 201207
  2. MODITEN [Concomitant]
     Dosage: 2.5 mg, bid
  3. ASENTRA [Concomitant]
     Dosage: 200 mg, bid
  4. LORAM [Concomitant]
     Dosage: 1.5 mg, bid
  5. AKINETON                           /00079501/ [Concomitant]
     Dosage: 4 mg, UNK

REACTIONS (4)
  - Hypotension [Recovered/Resolved]
  - Dyspnoea [Recovered/Resolved]
  - Dysphagia [Recovered/Resolved]
  - Movement disorder [Recovered/Resolved]
